FAERS Safety Report 5832174-X (Version None)
Quarter: 2008Q3

REPORT INFORMATION
  Report Type: 
  Country: None (occurrence: None)
  Receive Date: 20080731
  Receipt Date: 20080731
  Transmission Date: 20090109
  Serious: Yes (Other)
  Sender: FDA-Public Use
  Company Number: None

PATIENT
  Age: 42 Year
  Sex: Female
  Weight: 77.1115 kg

DRUGS (1)
  1. FLUCONAZOLE [Suspect]
     Indication: VULVOVAGINAL MYCOTIC INFECTION
     Dosage: 150 MG ONE TIME PO
     Route: 048
     Dates: start: 20080705, end: 20080706

REACTIONS (9)
  - BLISTER [None]
  - BURNING SENSATION [None]
  - DISCOMFORT [None]
  - DRUG INEFFECTIVE [None]
  - ERYTHEMA [None]
  - INFLAMMATION [None]
  - PAIN [None]
  - PYREXIA [None]
  - SKIN EXFOLIATION [None]
